FAERS Safety Report 18352962 (Version 4)
Quarter: 2020Q4

REPORT INFORMATION
  Report Type: Spontaneous
  Country: US (occurrence: US)
  Receive Date: 20201006
  Receipt Date: 20201030
  Transmission Date: 20210114
  Serious: Yes (Other)
  Sender: FDA-Public Use
  Company Number: US-ALLERGAN-2037421US

PATIENT
  Sex: Female
  Weight: 47.62 kg

DRUGS (2)
  1. MESALAZINE 1 GM SUP [Suspect]
     Active Substance: MESALAMINE
     Indication: POSTOPERATIVE CARE
     Dosage: UNK UNK, QD
     Route: 054
     Dates: start: 202008
  2. MESALAZINE 1 GM SUP [Suspect]
     Active Substance: MESALAMINE
     Indication: COLITIS ULCERATIVE
     Dosage: 1 DF, QD (1000 MG)
     Route: 054
     Dates: start: 2003

REACTIONS (19)
  - Malaise [Recovering/Resolving]
  - Haemorrhage [Recovered/Resolved]
  - Malabsorption [Recovering/Resolving]
  - Weight decreased [Recovering/Resolving]
  - Frequent bowel movements [Recovered/Resolved]
  - Wrong technique in product usage process [Unknown]
  - Product dose omission issue [Unknown]
  - Abnormal faeces [Recovering/Resolving]
  - Hip arthroplasty [Unknown]
  - Product quality issue [Unknown]
  - Gastrointestinal surgery [Unknown]
  - Crohn^s disease [Unknown]
  - Product packaging difficult to open [Unknown]
  - Drug ineffective [Unknown]
  - Muscle spasms [Recovered/Resolved]
  - Diarrhoea [Unknown]
  - Intestinal obstruction [Unknown]
  - Poor quality product administered [Unknown]
  - Nausea [Recovered/Resolved]

NARRATIVE: CASE EVENT DATE: 202008
